FAERS Safety Report 10609707 (Version 1)
Quarter: 2014Q4

REPORT INFORMATION
  Report Type: Spontaneous
  Country: US (occurrence: US)
  Receive Date: 20141126
  Receipt Date: 20141126
  Transmission Date: 20150529
  Serious: Yes (Other)
  Sender: FDA-Public Use
  Company Number: US-CIPLA LTD.-2014US02135

PATIENT

DRUGS (9)
  1. CARBOPLATIN. [Suspect]
     Active Substance: CARBOPLATIN
     Dosage: AREA UNDER THE CURVE, 5 30 MINUTES ON DAY 1 OF EVERY 21DAY CYCLE
     Route: 042
  2. RAMUCIRUMAB [Suspect]
     Active Substance: RAMUCIRUMAB
     Indication: NON-SMALL CELL LUNG CANCER STAGE IV
     Dosage: INTRAVENOUSLY AT A DOSE OF 10 MG/UNK
  3. CARBOPLATIN. [Suspect]
     Active Substance: CARBOPLATIN
     Indication: NON-SMALL CELL LUNG CANCER STAGE IV
     Dosage: 6 OVER 30 MINUTES ON DAY 1 OF EACH CYCLE30 MIN AFTER THE END OF THE PEMETREXED INFUSION
  4. FOLIC ACID. [Concomitant]
     Active Substance: FOLIC ACID
  5. GEMCITABINE [Suspect]
     Active Substance: GEMCITABINE\GEMCITABINE HYDROCHLORIDE
     Indication: NON-SMALL CELL LUNG CANCER STAGE IV
     Dosage: INTRAVENOUSLY AT A DOSE OF 1000 MG/M2 OVER 30 MINUTES ON DAYS 1 AND 8 OF EVERY 21 DAY CYCLE
  6. CISPLATIN. [Suspect]
     Active Substance: CISPLATIN
     Indication: NON-SMALL CELL LUNG CANCER STAGE IV
     Dosage: 75 MG/M2 OVER 120 MINUTES ON DAY 1 OF EACH CYCLE
  7. DEXAMETHASONE. [Concomitant]
     Active Substance: DEXAMETHASONE
  8. PEMETREXED [Suspect]
     Active Substance: PEMETREXED
     Indication: NON-SMALL CELL LUNG CANCER STAGE IV
     Dosage: 500 MG/M2 INTRAVENOUSLY OVER 10 TO 15 MINUTES ON DAY 1 OF EACH CYCLE
  9. VITAMIN B12 [Concomitant]
     Active Substance: CYANOCOBALAMIN

REACTIONS (1)
  - Respiratory failure [Unknown]
